FAERS Safety Report 23182388 (Version 2)
Quarter: 2023Q4

REPORT INFORMATION
  Report Type: Spontaneous
  Country: JP (occurrence: JP)
  Receive Date: 20231114
  Receipt Date: 20231128
  Transmission Date: 20240110
  Serious: Yes (Hospitalization)
  Sender: FDA-Public Use
  Company Number: JP-BEH-2023164586

PATIENT
  Age: 30 Year
  Sex: Female

DRUGS (3)
  1. ALBUMINAR-25 [Suspect]
     Active Substance: ALBUMIN HUMAN
     Indication: Pulmonary oedema
     Dosage: 2 DOSAGE FORM
     Route: 042
     Dates: start: 20231020, end: 20231020
  2. ALBUMINAR-5 [Suspect]
     Active Substance: ALBUMIN HUMAN
     Indication: Traumatic haemorrhage
     Dosage: 1 DOSAGE FORM, SINGLE
     Route: 042
     Dates: start: 20231015, end: 20231015
  3. ALBUMINAR-5 [Suspect]
     Active Substance: ALBUMIN HUMAN
     Dosage: 1 DOSAGE FORM
     Route: 042
     Dates: start: 20231015, end: 20231015

REACTIONS (1)
  - Dyspnoea [Recovered/Resolved]

NARRATIVE: CASE EVENT DATE: 20231020
